FAERS Safety Report 23160160 (Version 1)
Quarter: 2023Q4

REPORT INFORMATION
  Report Type: Spontaneous
  Country: CN (occurrence: CN)
  Receive Date: 20231108
  Receipt Date: 20231108
  Transmission Date: 20240110
  Serious: Yes (Hospitalization)
  Sender: FDA-Public Use
  Company Number: CN-PFIZER INC-PV202300179947

PATIENT
  Age: 78 Year
  Sex: Male

DRUGS (4)
  1. XALKORI [Suspect]
     Active Substance: CRIZOTINIB
     Indication: Myelodysplastic syndrome
     Dosage: 25.000 MG, 1X/DAY
     Route: 041
     Dates: start: 20230809, end: 20230813
  2. CYTARABINE HYDROCHLORIDE [Suspect]
     Active Substance: CYTARABINE HYDROCHLORIDE
     Indication: Myelodysplastic syndrome
     Dosage: 15 MG, 2X/DAY
     Route: 058
     Dates: start: 20230809, end: 20230815
  3. DECITABINE [Concomitant]
     Active Substance: DECITABINE
     Indication: Myelodysplastic syndrome
     Dosage: 25 MG, 1X/DAY
     Route: 041
     Dates: start: 20230809, end: 20230813
  4. YOU NI FEN [GRANULOCYTE MACROPHAGE COLONY STIMULATING FACTOR] [Concomitant]
     Indication: Myelodysplastic syndrome
     Dosage: 300 UG, 1X/DAY
     Route: 058
     Dates: start: 20230809, end: 20230815

REACTIONS (2)
  - Myelosuppression [Recovering/Resolving]
  - Cardiac murmur [Unknown]

NARRATIVE: CASE EVENT DATE: 20230821
